FAERS Safety Report 6194962-2 (Version None)
Quarter: 2009Q2

REPORT INFORMATION
  Report Type: 
  Country: None (occurrence: None)
  Receive Date: 20090515
  Receipt Date: 20090507
  Transmission Date: 20091009
  Serious: Yes (Disabling)
  Sender: FDA-Public Use
  Company Number: 2009SP000847

PATIENT
  Age: 60 Year
  Sex: Female

DRUGS (3)
  1. REBETOL [Suspect]
     Indication: HEPATITIS C
     Dosage: 1000 MG; QD; PO
     Route: 048
     Dates: start: 20081105, end: 20081126
  2. PEG-INTRON [Concomitant]
  3. MICARDIS (TELMISARTAN+HYDROCHLOROTIAZIDE) [Concomitant]

REACTIONS (5)
  - ANAEMIA [None]
  - ASTHENIA [None]
  - DYSPNOEA [None]
  - LEUKOPENIA [None]
  - TACHYCARDIA [None]
